FAERS Safety Report 23919316 (Version 1)
Quarter: 2024Q2

REPORT INFORMATION
  Report Type: Spontaneous
  Country: CN (occurrence: CN)
  Receive Date: 20240530
  Receipt Date: 20240530
  Transmission Date: 20240716
  Serious: Yes (Hospitalization, Other)
  Sender: FDA-Public Use
  Company Number: None

PATIENT
  Age: 75 Year
  Sex: Male
  Weight: 53 kg

DRUGS (8)
  1. CYCLOPHOSPHAMIDE [Suspect]
     Active Substance: CYCLOPHOSPHAMIDE
     Indication: Bone cancer
     Dosage: 1.2 G, ONE TIME IN ONE DAY, D1, DILUTED WITH 100 ML OF 0.9 % SODIUM CHLORIDE
     Route: 041
     Dates: start: 20240503, end: 20240503
  2. SODIUM CHLORIDE [Suspect]
     Active Substance: SODIUM CHLORIDE
     Indication: Medication dilution
     Dosage: (0.9%) 100 ML, ONE TIME IN ONE DAY, D1, USED TO DILUTE 1.2 G OF CYCLOPHOSPHAMIDE
     Route: 041
     Dates: start: 20240503, end: 20240503
  3. SODIUM CHLORIDE [Suspect]
     Active Substance: SODIUM CHLORIDE
     Dosage: (0.9%) 20 ML, ONE TIME IN ONE DAY, D1, USED TO DILUTE 4 MG OF VINDESINE SULFATE
     Route: 042
     Dates: start: 20240503, end: 20240503
  4. DEXTROSE [Suspect]
     Active Substance: DEXTROSE\DEXTROSE MONOHYDRATE
     Indication: Medication dilution
     Dosage: (5%) 150 ML, ONE TIME IN ONE DAY, D1, USED TO DILUTE 120 MG OF EPIRUBICIN HYDROCHLORIDE
     Route: 041
     Dates: start: 20240503, end: 20240503
  5. RITUXIMAB [Suspect]
     Active Substance: RITUXIMAB
     Indication: Bone cancer
     Dosage: 600 MG, ONE TIME IN ONE DAY, D0
     Route: 041
     Dates: start: 20240502, end: 20240502
  6. EPIRUBICIN HYDROCHLORIDE [Suspect]
     Active Substance: EPIRUBICIN HYDROCHLORIDE
     Indication: Bone cancer
     Dosage: 120 MG, ONE TIME IN ONE DAY, D1, DILUTED WITH 150 ML OF 5 % GLUCOSE
     Route: 041
     Dates: start: 20240503, end: 20240503
  7. VINDESINE SULFATE [Suspect]
     Active Substance: VINDESINE SULFATE
     Indication: Bone cancer
     Dosage: 4 MG, ONE TIME IN ONE DAY, D1, DILUTED WITH 20 ML OF 0.9 % SODIUM CHLORIDE
     Route: 042
     Dates: start: 20240503, end: 20240503
  8. PREDNISONE [Suspect]
     Active Substance: PREDNISONE
     Indication: Bone cancer
     Dosage: 100 MG, D1-D5
     Route: 065
     Dates: start: 20240503, end: 20240507

REACTIONS (1)
  - Myelosuppression [Recovering/Resolving]

NARRATIVE: CASE EVENT DATE: 20240514
